FAERS Safety Report 9869212 (Version 1)
Quarter: 2014Q1

REPORT INFORMATION
  Report Type: Spontaneous
  Country: PT (occurrence: PT)
  Receive Date: 20140205
  Receipt Date: 20140205
  Transmission Date: 20141002
  Serious: Yes (Other)
  Sender: FDA-Public Use
  Company Number: PT-ROCHE-1341021

PATIENT
  Age: 46 Year
  Sex: Male

DRUGS (5)
  1. PEGASYS [Suspect]
     Indication: HEPATITIS C
     Route: 058
     Dates: start: 20121127
  2. PEGASYS [Suspect]
     Dosage: AFTER 12 WEEKS OF TREATMENT
     Route: 058
     Dates: end: 20131023
  3. COPEGUS [Suspect]
     Indication: HEPATITIS C
     Dosage: 1200MG/DAY
     Route: 048
     Dates: start: 20121127, end: 20131030
  4. VICTRELIS [Suspect]
     Indication: HEPATITIS C
     Route: 048
     Dates: start: 20121226, end: 20131030
  5. FILGRASTIM [Concomitant]
     Route: 065
     Dates: start: 20130410

REACTIONS (11)
  - Alopecia [Unknown]
  - Anaemia [Unknown]
  - Anxiety [Unknown]
  - Arthralgia [Unknown]
  - Dysgeusia [Unknown]
  - Dyspnoea [Unknown]
  - Fatigue [Unknown]
  - Headache [Unknown]
  - Irritability [Unknown]
  - Leukopenia [Unknown]
  - Thrombocytopenia [Unknown]
